FAERS Safety Report 7039877-2 (Version None)
Quarter: 2010Q3

REPORT INFORMATION
  Report Type: 
  Country: None (occurrence: None)
  Receive Date: 20100929
  Receipt Date: 20100622
  Transmission Date: 20110219
  Serious: Yes (Other)
  Sender: FDA-Public Use
  Company Number: US-WYE-H15805110

PATIENT
  Age: 74 Year
  Sex: Female
  Weight: 61.29 kg

DRUGS (7)
  1. PRISTIQ [Suspect]
     Indication: DEPRESSION
     Dosage: 50 MG 1X PER 1 DAY, ORAL;
     Route: 048
     Dates: start: 20091120, end: 20091127
  2. NORVASC [Suspect]
     Indication: HYPERTENSION
     Dosage: 1.2 RESTARTED UNKNOWN DOSE, ORAL
     Route: 048
  3. PRINIVIL [Concomitant]
  4. FISH OIL, HYDROGENATED (FISH OIL, HYDROGENATED) [Concomitant]
  5. PRAVASTATIN [Concomitant]
  6. DEPAKOTE [Concomitant]
  7. SEROQUEL [Concomitant]

REACTIONS (2)
  - CONDITION AGGRAVATED [None]
  - HYPERTENSION [None]
